FAERS Safety Report 9817076 (Version 2)
Quarter: 2014Q2

REPORT INFORMATION
  Report Type: Report from Study
  Country: BR (occurrence: BR)
  Receive Date: 20140114
  Receipt Date: 20140408
  Transmission Date: 20141212
  Serious: Yes (Other)
  Sender: FDA-Public Use
  Company Number: PHHY2014BR003057

PATIENT
  Age: 67 Year
  Sex: Female

DRUGS (6)
  1. TRILEPTAL [Suspect]
     Indication: EPILEPSY
     Dosage: 600 MG, Q12H
     Route: 048
  2. TRILEPTAL [Suspect]
     Indication: CONVULSION
  3. DIOVAN HCT [Suspect]
     Indication: MYOCARDIAL INFARCTION
     Dosage: 1 DF (320 MG VALS, 25 MG HYDR), QD (IN THE MORNING)
     Route: 048
  4. DIOVAN HCT [Suspect]
     Indication: HYPERTENSION
  5. OMEPRAZOLE [Concomitant]
     Indication: GASTRIC DISORDER
     Dosage: 1 DF (20MG) DAILY
     Route: 048
     Dates: start: 201401
  6. AAS [Concomitant]
     Indication: ANTICOAGULANT THERAPY
     Dosage: 1 DF (100MG) DAILY
     Route: 048

REACTIONS (7)
  - Ischaemic stroke [Recovering/Resolving]
  - Tachycardia [Recovering/Resolving]
  - Malaise [Unknown]
  - Dyspnoea [Not Recovered/Not Resolved]
  - Fatigue [Not Recovered/Not Resolved]
  - Somnolence [Recovered/Resolved]
  - Insomnia [Recovering/Resolving]
